FAERS Safety Report 17956822 (Version 1)
Quarter: 2020Q2

REPORT INFORMATION
  Report Type: Spontaneous
  Country: US (occurrence: US)
  Receive Date: 20200628
  Receipt Date: 20200628
  Transmission Date: 20200714
  Serious: No
  Sender: FDA-Public Use
  Company Number: None

PATIENT
  Age: 38 Year
  Sex: Female
  Weight: 66.15 kg

DRUGS (8)
  1. TURMERIC [Concomitant]
     Active Substance: HERBALS\TURMERIC
  2. FISH OIL [Concomitant]
     Active Substance: FISH OIL
  3. CITICOLINE CDP CHOLINE [Concomitant]
  4. DEXTROAMPHET SACCHARAT, AMPHET ASPARTATE, DEXTROAMPHET SULFATE AND AMPHET SULFAT [Suspect]
     Active Substance: AMPHETAMINE ASPARTATE\AMPHETAMINE SULFATE\DEXTROAMPHETAMINE SACCHARATE\DEXTROAMPHETAMINE SULFATE
     Indication: ATTENTION DEFICIT HYPERACTIVITY DISORDER
     Dosage: ?          QUANTITY:1 CAPSULE(S);?
     Route: 048
     Dates: start: 20200522, end: 20200623
  5. ADDERALL XR [Suspect]
     Active Substance: AMPHETAMINE ASPARTATE\AMPHETAMINE SULFATE\DEXTROAMPHETAMINE SACCHARATE\DEXTROAMPHETAMINE SULFATE
     Indication: ATTENTION DEFICIT HYPERACTIVITY DISORDER
     Dosage: ?          QUANTITY:1 CAPSULE(S);?
     Route: 048
     Dates: start: 20200625
  6. VITAMIN B [Concomitant]
     Active Substance: VITAMIN B
  7. MAGNESIUM [Concomitant]
     Active Substance: MAGNESIUM
  8. ALA [Concomitant]

REACTIONS (5)
  - Insomnia [None]
  - Product substitution issue [None]
  - Headache [None]
  - Drug ineffective [None]
  - Feeling abnormal [None]

NARRATIVE: CASE EVENT DATE: 20200625
